FAERS Safety Report 10064565 (Version 2)
Quarter: 2016Q1

REPORT INFORMATION
  Report Type: Spontaneous
  Country: SE (occurrence: SE)
  Receive Date: 20140408
  Receipt Date: 20160303
  Transmission Date: 20160525
  Serious: Yes (Other)
  Sender: FDA-Public Use
  Company Number: SE-AMGEN-SWESP2014023774

PATIENT
  Age: 71 Year
  Sex: Female

DRUGS (8)
  1. AMLODIPINE [Concomitant]
     Active Substance: AMLODIPINE BESYLATE
     Dosage: UNK
  2. PREDNISOLONE. [Concomitant]
     Active Substance: PREDNISOLONE
  3. PROLIA [Suspect]
     Active Substance: DENOSUMAB
     Indication: OSTEOPOROSIS
     Dosage: 60 MG, UNK
     Route: 065
     Dates: start: 201302
  4. OMEPRAZOLE. [Concomitant]
     Active Substance: OMEPRAZOLE
  5. ACLASTA [Concomitant]
     Active Substance: ZOLEDRONIC ACID
  6. IDEOS [Concomitant]
     Active Substance: CALCIUM CARBONATE\CHOLECALCIFEROL
  7. CORTISONE [Concomitant]
     Active Substance: CORTISONE\HYDROCORTISONE
     Route: 048
  8. SALURES [Concomitant]
     Active Substance: BENDROFLUMETHIAZIDE
     Dosage: 2.5 MG, UNK

REACTIONS (7)
  - Coordination abnormal [Unknown]
  - Feeling abnormal [Unknown]
  - Mastication disorder [Unknown]
  - Pain in jaw [Unknown]
  - Musculoskeletal stiffness [Unknown]
  - Headache [Unknown]
  - Paraesthesia [Unknown]
